FAERS Safety Report 11848850 (Version 1)
Quarter: 2015Q4

REPORT INFORMATION
  Report Type: Other
  Country: GB (occurrence: GB)
  Receive Date: 20151218
  Receipt Date: 20151218
  Transmission Date: 20160305
  Serious: Yes (Other)
  Sender: FDA-Public Use
  Company Number: GB-CIPLA LTD.-2015GB09454

PATIENT

DRUGS (4)
  1. ATENOLOL. [Concomitant]
     Active Substance: ATENOLOL
     Indication: ESSENTIAL TREMOR
     Route: 065
  2. RAMIPRIL. [Suspect]
     Active Substance: RAMIPRIL
     Indication: HYPERTENSION
     Dosage: 10 MG, UNK
     Route: 048
     Dates: start: 2005, end: 201510
  3. RAMIPRIL. [Suspect]
     Active Substance: RAMIPRIL
     Dosage: 5 MG, UNK
     Route: 048
     Dates: start: 201510
  4. CO-TENIDONE [Suspect]
     Active Substance: ATENOLOL\CHLORTHALIDONE
     Indication: HYPERTENSION
     Dosage: UNK
     Route: 048

REACTIONS (7)
  - Cough [Unknown]
  - Atrial fibrillation [Recovered/Resolved]
  - Cough decreased [Unknown]
  - Heart rate decreased [Recovered/Resolved]
  - Blood pressure systolic increased [Unknown]
  - Arrhythmia [Recovered/Resolved]
  - Blood pressure diastolic increased [Unknown]

NARRATIVE: CASE EVENT DATE: 201503
